FAERS Safety Report 7482831-7 (Version None)
Quarter: 2011Q2

REPORT INFORMATION
  Report Type: 
  Country: None (occurrence: None)
  Receive Date: 20110516
  Receipt Date: 20101108
  Transmission Date: 20111010
  Serious: Yes (Other)
  Sender: FDA-Public Use
  Company Number: PHHY2010DE92129

PATIENT
  Sex: Female
  Weight: 110 kg

DRUGS (2)
  1. EXTAVIA [Suspect]
     Indication: MULTIPLE SCLEROSIS
     Dosage: 0.75 ML
     Route: 058
  2. EXTAVIA [Suspect]
     Dosage: 1 ML
     Route: 058

REACTIONS (5)
  - COGNITIVE DISORDER [None]
  - FATIGUE [None]
  - INJECTION SITE URTICARIA [None]
  - INJECTION SITE PRURITUS [None]
  - INJECTION SITE HAEMATOMA [None]
